FAERS Safety Report 21046214 (Version 1)
Quarter: 2022Q3

REPORT INFORMATION
  Report Type: Report from Study
  Country: US (occurrence: US)
  Receive Date: 20220706
  Receipt Date: 20220706
  Transmission Date: 20221027
  Serious: Yes (Other)
  Sender: FDA-Public Use
  Company Number: US-TAKEDA-US201607443

PATIENT
  Sex: Male

DRUGS (1)
  1. IDURSULFASE [Suspect]
     Active Substance: IDURSULFASE
     Indication: Mucopolysaccharidosis II
     Dosage: UNK
     Route: 042
     Dates: start: 20120228

REACTIONS (4)
  - Cardiac disorder [Unknown]
  - Carpal tunnel syndrome [Unknown]
  - Complication associated with device [Unknown]
  - COVID-19 [Not Recovered/Not Resolved]
